FAERS Safety Report 7656674-5 (Version None)
Quarter: 2011Q3

REPORT INFORMATION
  Report Type: 
  Country: None (occurrence: None)
  Receive Date: 20110804
  Receipt Date: 20110728
  Transmission Date: 20111222
  Serious: Yes (Hospitalization)
  Sender: FDA-Public Use
  Company Number: FR-MERCK-1108USA00063

PATIENT
  Age: 39 Year
  Sex: Female

DRUGS (6)
  1. ISENTRESS [Suspect]
     Indication: HIV INFECTION
     Route: 048
     Dates: start: 20110427, end: 20110526
  2. CELSENTRI [Suspect]
     Indication: HIV INFECTION
     Route: 048
     Dates: start: 20110427, end: 20110526
  3. BACTRIM [Suspect]
     Indication: SEPSIS
     Route: 048
     Dates: start: 20110514, end: 20110604
  4. VANCOMYCIN [Suspect]
     Indication: SEPSIS
     Route: 041
     Dates: start: 20110514
  5. VANCOMYCIN [Suspect]
     Dosage: AT THE END OF DIALYSIS
     Route: 041
     Dates: start: 20110514, end: 20110523
  6. GENTAMICIN [Concomitant]
     Indication: SEPSIS
     Dosage: CYCLICAL
     Route: 041
     Dates: start: 20110514, end: 20110517

REACTIONS (3)
  - CONVULSION [None]
  - TREMOR [None]
  - MYOCLONUS [None]
